FAERS Safety Report 19767042 (Version 2)
Quarter: 2021Q3

REPORT INFORMATION
  Report Type: Spontaneous
  Country: JP (occurrence: JP)
  Receive Date: 20210830
  Receipt Date: 20210902
  Transmission Date: 20211014
  Serious: Yes (Other)
  Sender: FDA-Public Use
  Company Number: JP-ALLERGAN-2130085US

PATIENT
  Sex: Female

DRUGS (3)
  1. ASENAPINE MALEATE ? BP [Suspect]
     Active Substance: ASENAPINE MALEATE
     Indication: ANXIETY
     Dosage: 5 MG, QD
     Route: 060
     Dates: start: 201907, end: 201907
  2. OLANZAPINE. [Suspect]
     Active Substance: OLANZAPINE
     Dosage: 5 MG
     Route: 048
     Dates: start: 201902
  3. OLANZAPINE. [Suspect]
     Active Substance: OLANZAPINE
     Indication: PERSECUTORY DELUSION
     Dosage: 10 MG
     Route: 048

REACTIONS (5)
  - Dyspnoea [Recovered/Resolved]
  - Weight increased [Not Recovered/Not Resolved]
  - Poriomania [Recovered/Resolved]
  - Dysphoria [Recovered/Resolved]
  - Hypoaesthesia oral [Recovered/Resolved]
